FAERS Safety Report 17555013 (Version 1)
Quarter: 2020Q1

REPORT INFORMATION
  Report Type: Spontaneous
  Country: US (occurrence: US)
  Receive Date: 20200317
  Receipt Date: 20200317
  Transmission Date: 20200409
  Serious: Yes (Other)
  Sender: FDA-Public Use
  Company Number: None

PATIENT
  Age: 62 Year
  Sex: Female
  Weight: 56.84 kg

DRUGS (5)
  1. CALCIUM CARBONATE. [Concomitant]
     Active Substance: CALCIUM CARBONATE
  2. PIQRAY [Suspect]
     Active Substance: ALPELISIB
     Route: 048
     Dates: start: 20200226
  3. FULVESTRANY [Concomitant]
  4. VITAMIN D3 [Concomitant]
     Active Substance: CHOLECALCIFEROL
  5. XGEVA [Concomitant]
     Active Substance: DENOSUMAB

REACTIONS (6)
  - Rash [None]
  - Fatigue [None]
  - Dry mouth [None]
  - Pyrexia [None]
  - Chills [None]
  - Dysphagia [None]

NARRATIVE: CASE EVENT DATE: 20200307
